FAERS Safety Report 12394636 (Version 1)
Quarter: 2016Q2

REPORT INFORMATION
  Report Type: Spontaneous
  Country: FR (occurrence: FR)
  Receive Date: 20160523
  Receipt Date: 20160523
  Transmission Date: 20160815
  Serious: Yes (Other)
  Sender: FDA-Public Use
  Company Number: FR-TEVA-660288ISR

PATIENT
  Age: 14 Year
  Sex: Male

DRUGS (7)
  1. DAUNOXOME [Suspect]
     Active Substance: DAUNORUBICIN CITRATE
     Indication: ACUTE MYELOID LEUKAEMIA
  2. METHOTREXATE [Concomitant]
     Active Substance: METHOTREXATE
     Route: 037
     Dates: start: 20160413
  3. FLUDARABINE TEVA [Suspect]
     Active Substance: FLUDARABINE PHOSPHATE
     Indication: ACUTE MYELOID LEUKAEMIA
     Route: 042
     Dates: start: 20160414, end: 20160418
  4. CYTARABINE KABI [Suspect]
     Active Substance: CYTARABINE
     Dates: start: 20160414, end: 20160418
  5. BACTRIM [Concomitant]
     Active Substance: SULFAMETHOXAZOLE\TRIMETHOPRIM
  6. CYTARABINE KABI [Suspect]
     Active Substance: CYTARABINE
     Indication: ACUTE MYELOID LEUKAEMIA
     Route: 037
     Dates: start: 20160413
  7. PREDNISOLONE. [Concomitant]
     Active Substance: PREDNISOLONE
     Route: 037
     Dates: start: 20160413

REACTIONS (2)
  - Headache [Recovering/Resolving]
  - Meningeal disorder [Recovering/Resolving]
